FAERS Safety Report 8075357-3 (Version None)
Quarter: 2012Q1

REPORT INFORMATION
  Report Type: 
  Country: None (occurrence: None)
  Receive Date: 20120127
  Receipt Date: 20120119
  Transmission Date: 20120608
  Serious: Yes (Hospitalization, Other)
  Sender: FDA-Public Use
  Company Number: US-BAYER-201040881NA

PATIENT
  Age: 20 Year
  Sex: Female
  Weight: 106.58 kg

DRUGS (4)
  1. IBUPROFEN [Concomitant]
     Indication: MUSCULOSKELETAL PAIN
     Dosage: UNK UNK, PRN
  2. ANTITHROMBOTIC AGENTS [Concomitant]
  3. ACETAMINOPHEN [Concomitant]
  4. YASMIN [Suspect]
     Indication: DYSMENORRHOEA
     Dosage: UNK UNK, QD
     Route: 048
     Dates: start: 20060601, end: 20061101

REACTIONS (1)
  - PULMONARY EMBOLISM [None]
